FAERS Safety Report 6072999-1 (Version None)
Quarter: 2009Q1

REPORT INFORMATION
  Report Type: 
  Country: None (occurrence: None)
  Receive Date: 20090211
  Receipt Date: 20090205
  Transmission Date: 20090719
  Serious: Yes (Other)
  Sender: FDA-Public Use
  Company Number: GB-RANBAXY-2009RR-21592

PATIENT
  Age: 69 Year
  Sex: Female
  Weight: 65 kg

DRUGS (3)
  1. LISINOPRIL [Suspect]
     Indication: HYPERTENSION
     Dosage: 1 DF, QD
     Route: 048
     Dates: start: 20060101, end: 20090112
  2. AMLODIPINE [Concomitant]
     Indication: HYPERTENSION
     Dosage: 5 MG, QD
     Route: 048
     Dates: start: 20081001, end: 20090112
  3. SIMVASTATIN [Concomitant]
     Indication: HYPERCHOLESTEROLAEMIA
     Dosage: 20 MG, QD
     Route: 048

REACTIONS (2)
  - LOCAL SWELLING [None]
  - SWOLLEN TONGUE [None]
